FAERS Safety Report 18398765 (Version 4)
Quarter: 2021Q2

REPORT INFORMATION
  Report Type: Spontaneous
  Country: US (occurrence: US)
  Receive Date: 20201019
  Receipt Date: 20210617
  Transmission Date: 20210717
  Serious: Yes (Other)
  Sender: FDA-Public Use
  Company Number: US-GLAXOSMITHKLINE-US2020AMR206667

PATIENT
  Sex: Female

DRUGS (4)
  1. ZEJULA [Suspect]
     Active Substance: NIRAPARIB
     Indication: OVARIAN CANCER
     Dosage: 100 MG
     Dates: start: 20190206
  2. ZEJULA [Suspect]
     Active Substance: NIRAPARIB
     Dosage: 100 MG
  3. ZEJULA [Suspect]
     Active Substance: NIRAPARIB
     Dosage: 100 MG, QD
  4. ZEJULA [Suspect]
     Active Substance: NIRAPARIB
     Dosage: 100 MG, QD

REACTIONS (18)
  - Loss of consciousness [Unknown]
  - Dehydration [Unknown]
  - Mouth haemorrhage [Unknown]
  - Rosacea [Unknown]
  - Anxiety [Unknown]
  - Somnolence [Unknown]
  - Fatigue [Unknown]
  - Adverse drug reaction [Unknown]
  - Alopecia [Unknown]
  - Insomnia [Unknown]
  - Blood sodium increased [Unknown]
  - Multiple allergies [Unknown]
  - Thyroid mass [Unknown]
  - Dizziness [Unknown]
  - Bruxism [Unknown]
  - Onychoclasis [Unknown]
  - Vision blurred [Unknown]
  - Product dose omission in error [Unknown]
